FAERS Safety Report 19233604 (Version 1)
Quarter: 2021Q2

REPORT INFORMATION
  Report Type: Spontaneous
  Country: US (occurrence: US)
  Receive Date: 20210507
  Receipt Date: 20210507
  Transmission Date: 20210717
  Serious: No
  Sender: FDA-Public Use
  Company Number: US-MYLANLABS-2021M1026683

PATIENT
  Age: 23 Year
  Sex: Female
  Weight: 58.97 kg

DRUGS (5)
  1. EPINEPHRINE. [Suspect]
     Active Substance: EPINEPHRINE
     Indication: HYPERSENSITIVITY
     Dosage: UNK
     Dates: start: 202104
  2. BENADRYL [Interacting]
     Active Substance: DIPHENHYDRAMINE HYDROCHLORIDE
     Indication: HYPERSENSITIVITY
     Dosage: UNK
     Route: 065
     Dates: start: 202104
  3. PFIZER?BIONTECH COVID?19 VACCINE [Interacting]
     Active Substance: TOZINAMERAN
     Indication: COVID-19 IMMUNISATION
     Dosage: UNK, TOTAL (SINGLE DOSE)
     Dates: start: 20210409, end: 20210409
  4. FAMOTIDINE. [Interacting]
     Active Substance: FAMOTIDINE
     Indication: HYPERSENSITIVITY
     Dosage: UNK
     Route: 065
     Dates: start: 202104
  5. SODIUM CHLORIDE. [Concomitant]
     Active Substance: SODIUM CHLORIDE
     Dosage: UNK
     Dates: start: 202104

REACTIONS (1)
  - Drug interaction [Unknown]

NARRATIVE: CASE EVENT DATE: 202104
